FAERS Safety Report 18218038 (Version 5)
Quarter: 2021Q1

REPORT INFORMATION
  Report Type: Report from Study
  Country: US (occurrence: US)
  Receive Date: 20200901
  Receipt Date: 20210312
  Transmission Date: 20210419
  Serious: Yes (Other)
  Sender: FDA-Public Use
  Company Number: NVSC2020US237184

PATIENT
  Sex: Male

DRUGS (7)
  1. BEOVU [Suspect]
     Active Substance: BROLUCIZUMAB-DBLL
     Indication: NEOVASCULAR AGE-RELATED MACULAR DEGENERATION
     Dosage: UNK
     Route: 047
  2. ASPIRIN. [Concomitant]
     Active Substance: ASPIRIN
     Indication: PAIN
     Route: 065
  3. LUCENTIS [Suspect]
     Active Substance: RANIBIZUMAB
     Indication: PRODUCT USED FOR UNKNOWN INDICATION
     Route: 065
  4. ASPIRIN. [Concomitant]
     Active Substance: ASPIRIN
     Indication: ARTHRALGIA
  5. AVASTIN [Suspect]
     Active Substance: BEVACIZUMAB
     Indication: PRODUCT USED FOR UNKNOWN INDICATION
     Dosage: UNK
     Route: 065
  6. TYLENOL [Concomitant]
     Active Substance: ACETAMINOPHEN
     Indication: ARTHRALGIA
     Route: 065
  7. LIDOCAINE. [Suspect]
     Active Substance: LIDOCAINE
     Indication: EYELID SENSORY DISORDER
     Dosage: UNK (SHOTS)
     Route: 047

REACTIONS (11)
  - Visual impairment [Unknown]
  - Eye haemorrhage [Not Recovered/Not Resolved]
  - Metamorphopsia [Unknown]
  - Conjunctival scar [Unknown]
  - Drug effect less than expected [Unknown]
  - Thrombosis [Unknown]
  - Vision blurred [Unknown]
  - Eye swelling [Unknown]
  - Injection site swelling [Unknown]
  - Retinal vasculitis [Unknown]
  - Vitreous floaters [Unknown]
